FAERS Safety Report 9303583 (Version 1)
Quarter: 2013Q2

REPORT INFORMATION
  Report Type: Spontaneous
  Country: US (occurrence: None)
  Receive Date: 20130521
  Receipt Date: 20130521
  Transmission Date: 20140414
  Serious: No
  Sender: FDA-Public Use
  Company Number: None

PATIENT
  Sex: Female

DRUGS (1)
  1. HYDROCODONE/APAP [Suspect]
     Indication: PAIN
     Dosage: 1 TO 1 1/2  Q4H PRN
     Route: 048
     Dates: start: 20130425, end: 20130429

REACTIONS (3)
  - Headache [None]
  - Decreased activity [None]
  - Pain [None]
